FAERS Safety Report 6374061-7 (Version None)
Quarter: 2009Q3

REPORT INFORMATION
  Report Type: 
  Country: None (occurrence: None)
  Receive Date: 20090924
  Receipt Date: 20090707
  Transmission Date: 20100115
  Serious: No
  Sender: FDA-Public Use
  Company Number: US-ASTRAZENECA-2009UW18996

PATIENT
  Age: 49 Year
  Sex: Female
  Weight: 122.5 kg

DRUGS (9)
  1. SEROQUEL [Suspect]
     Indication: BIPOLAR DISORDER
     Route: 048
  2. GEODON [Concomitant]
  3. LEXAPRO [Concomitant]
  4. NEURONTIN [Concomitant]
  5. WELLBUTRIN [Concomitant]
  6. ADDERALL 10 [Concomitant]
  7. PLAVIX [Concomitant]
  8. LISINOPRIL [Concomitant]
  9. VICODIN [Concomitant]

REACTIONS (1)
  - DRUG SCREEN FALSE POSITIVE [None]
